FAERS Safety Report 12753250 (Version 5)
Quarter: 2021Q4

REPORT INFORMATION
  Report Type: Report from Study
  Country: DE (occurrence: DE)
  Receive Date: 20160916
  Receipt Date: 20211026
  Transmission Date: 20220303
  Serious: Yes (Other)
  Sender: FDA-Public Use
  Company Number: DE-BIOGEN-2016BI00290319

PATIENT
  Age: 33 Year
  Sex: Female
  Weight: 80 kg

DRUGS (5)
  1. PLEGRIDY [Suspect]
     Active Substance: PEGINTERFERON BETA-1A
     Indication: Multiple sclerosis
     Route: 058
     Dates: start: 20150408, end: 201508
  2. PLEGRIDY [Suspect]
     Active Substance: PEGINTERFERON BETA-1A
     Route: 058
     Dates: start: 20160805
  3. LEVOTHYROXINE [Concomitant]
     Active Substance: LEVOTHYROXINE
     Indication: Hypothyroidism
     Route: 065
     Dates: start: 1998
  4. MAGNESIUM [Concomitant]
     Active Substance: MAGNESIUM
     Indication: Magnesium deficiency
     Route: 065
     Dates: start: 2015, end: 2016
  5. folio, folio forte [Concomitant]
     Indication: Prophylaxis
     Route: 065
     Dates: start: 2015, end: 2016

REACTIONS (5)
  - Caesarean section [Recovered/Resolved]
  - Haemorrhage in pregnancy [Recovered/Resolved]
  - Cervical incompetence [Recovered/Resolved]
  - Multiple sclerosis relapse [Recovered/Resolved]
  - Maternal exposure during pregnancy [Recovered/Resolved]

NARRATIVE: CASE EVENT DATE: 20150601
